FAERS Safety Report 13151913 (Version 1)
Quarter: 2017Q1

REPORT INFORMATION
  Report Type: Report from Study
  Country: NL (occurrence: NL)
  Receive Date: 20170125
  Receipt Date: 20170125
  Transmission Date: 20170428
  Serious: Yes (Death, Hospitalization, Other)
  Sender: FDA-Public Use
  Company Number: PHHY2017NL004200

PATIENT
  Age: 83 Year
  Sex: Female

DRUGS (3)
  1. SANDOSTATINE LAR [Suspect]
     Active Substance: OCTREOTIDE ACETATE
     Indication: NEUROENDOCRINE TUMOUR
     Dosage: 30 MG, (ONCE EVERY 3 WEEKS)
     Route: 030
  2. SANDOSTATINE LAR [Suspect]
     Active Substance: OCTREOTIDE ACETATE
     Dosage: 30 MG, (ONCE EVERY 3 WEEKS)
     Route: 030
     Dates: start: 20161228
  3. SANDOSTATINE LAR [Suspect]
     Active Substance: OCTREOTIDE ACETATE
     Dosage: 30 MG, (ONCE EVERY 3 WEEKS)
     Route: 030
     Dates: start: 20160509

REACTIONS (6)
  - Inappropriate schedule of drug administration [Unknown]
  - Death [Fatal]
  - Haematemesis [Unknown]
  - Small intestine carcinoma [Unknown]
  - Duodenal obstruction [Unknown]
  - Gastrointestinal haemorrhage [Recovering/Resolving]

NARRATIVE: CASE EVENT DATE: 20170103
